FAERS Safety Report 4981525-7 (Version None)
Quarter: 2006Q2

REPORT INFORMATION
  Report Type: 
  Country: None (occurrence: None)
  Receive Date: 20060419
  Receipt Date: 20060330
  Transmission Date: 20061013
  Serious: Yes (Hospitalization)
  Sender: FDA-Public Use
  Company Number: US200603007022

PATIENT
  Age: 51 Year
  Sex: Female

DRUGS (2)
  1. GEMZAR [Suspect]
     Indication: BREAST CANCER
     Dosage: 1700 MG, INTRAVENOUS
     Route: 042
     Dates: start: 20051003, end: 20051020
  2. SIMVASTATIN [Concomitant]

REACTIONS (1)
  - PNEUMONIA [None]
